FAERS Safety Report 7412843-0 (Version None)
Quarter: 2011Q2

REPORT INFORMATION
  Report Type: 
  Country: None (occurrence: None)
  Receive Date: 20110413
  Receipt Date: 20110406
  Transmission Date: 20111010
  Serious: Yes (Hospitalization, Disabling)
  Sender: FDA-Public Use
  Company Number: B0711982A

PATIENT
  Sex: Male
  Weight: 32 kg

DRUGS (13)
  1. ZOVIRAX [Concomitant]
     Dosage: 150MG PER DAY
     Route: 042
     Dates: start: 20020527, end: 20020618
  2. DIFLUCAN [Concomitant]
     Dosage: 100MG PER DAY
     Route: 042
     Dates: start: 20020528, end: 20020614
  3. THIOTEPA [Suspect]
     Dosage: 200MGM2 PER DAY
     Dates: start: 20020529, end: 20020530
  4. THIOTEPA [Suspect]
     Indication: STEM CELL TRANSPLANT
     Dosage: 200MGM2 PER DAY
     Dates: start: 20020522, end: 20020523
  5. DIAMOX [Concomitant]
     Dosage: 500MG PER DAY
     Dates: start: 20020525, end: 20020614
  6. GASTER [Concomitant]
     Dosage: 20MG PER DAY
     Route: 042
     Dates: start: 20020528, end: 20020614
  7. ATARAX [Concomitant]
     Dosage: 25MG PER DAY
     Dates: start: 20020529, end: 20020606
  8. ALKERAN [Suspect]
     Dosage: 63MGM2 PER DAY
     Route: 042
     Dates: start: 20020529, end: 20020530
  9. FLUMARIN [Concomitant]
     Dosage: 2G PER DAY
     Route: 042
     Dates: start: 20020528, end: 20020603
  10. ALKERAN [Suspect]
     Indication: STEM CELL TRANSPLANT
     Dosage: 63MGM2 PER DAY
     Route: 042
     Dates: start: 20020522, end: 20020523
  11. MIRACLID [Concomitant]
     Dosage: 150IU3 PER DAY
     Route: 042
     Dates: start: 20020528, end: 20020606
  12. KYTRIL [Concomitant]
     Dosage: 6MG PER DAY
     Route: 042
     Dates: end: 20020531
  13. NEO-MINOPHAGEN-C [Concomitant]
     Dosage: 40ML PER DAY
     Route: 042
     Dates: start: 20020529, end: 20020603

REACTIONS (4)
  - HYPOGEUSIA [None]
  - PYREXIA [None]
  - MUCOSAL INFLAMMATION [None]
  - VOMITING [None]
